FAERS Safety Report 5763740-8 (Version None)
Quarter: 2008Q2

REPORT INFORMATION
  Report Type: 
  Country: None (occurrence: None)
  Receive Date: 20080610
  Receipt Date: 20080528
  Transmission Date: 20081010
  Serious: Yes (Hospitalization)
  Sender: FDA-Public Use
  Company Number: US-KINGPHARMUSA00001-K200800600

PATIENT

DRUGS (9)
  1. ALTACE [Suspect]
     Indication: HYPERTENSION
     Dosage: UNK, UNK
     Route: 048
     Dates: end: 20080330
  2. ALTACE [Suspect]
     Indication: CARDIAC FAILURE
     Dosage: 2.5 MG, QD
     Route: 048
     Dates: start: 20080331, end: 20080416
  3. ALDACTONE [Suspect]
     Route: 048
     Dates: end: 20080101
  4. PREVISCAN                          /00789001/ [Suspect]
     Indication: ATRIAL FIBRILLATION
     Dosage: 15 MG, QD
     Route: 048
  5. TRINITRINE [Concomitant]
     Dosage: 10 MG, UNK
     Route: 062
  6. LASILIX                            /00032601/ [Concomitant]
     Dosage: UNK, UNK
     Route: 048
  7. FOLIC ACID [Concomitant]
  8. VITAMIN B1 [Concomitant]
  9. VITAMIN B6 [Concomitant]

REACTIONS (11)
  - ABNORMAL BEHAVIOUR [None]
  - ANAEMIA [None]
  - CONFUSIONAL STATE [None]
  - DISORIENTATION [None]
  - DRUG TOXICITY [None]
  - HALLUCINATION, VISUAL [None]
  - HYPERKALAEMIA [None]
  - INTERNATIONAL NORMALISED RATIO INCREASED [None]
  - OEDEMA PERIPHERAL [None]
  - PUNCTURE SITE HAEMORRHAGE [None]
  - RENAL FAILURE ACUTE [None]
